FAERS Safety Report 10146230 (Version 1)
Quarter: 2014Q2

REPORT INFORMATION
  Report Type: Spontaneous
  Country: US (occurrence: None)
  Receive Date: 20140430
  Receipt Date: 20140430
  Transmission Date: 20141212
  Serious: Yes (Hospitalization)
  Sender: FDA-Public Use
  Company Number: None

PATIENT
  Age: 46 Year
  Sex: Female

DRUGS (5)
  1. ATAZANAVIR [Suspect]
     Indication: HIV INFECTION
     Route: 048
     Dates: start: 20111116, end: 20131118
  2. ABACAVIR [Concomitant]
  3. LAMIVUDINE [Concomitant]
  4. AMLODIPINE [Concomitant]
  5. RITONAVIR [Concomitant]
     Route: 048
     Dates: start: 20111116, end: 20131118

REACTIONS (1)
  - Nephrolithiasis [None]
